FAERS Safety Report 20305299 (Version 1)
Quarter: 2022Q1

REPORT INFORMATION
  Report Type: Spontaneous
  Country: US (occurrence: None)
  Receive Date: 20220106
  Receipt Date: 20220106
  Transmission Date: 20220423
  Serious: No
  Sender: FDA-Public Use
  Company Number: None

PATIENT
  Age: 61 Year
  Sex: Male

DRUGS (1)
  1. ABIRATERONE [Suspect]
     Active Substance: ABIRATERONE
     Indication: Prostate cancer
     Dosage: FREQUENCY : DAILY;?
     Route: 048
     Dates: start: 202111, end: 202112

REACTIONS (6)
  - Hepatic enzyme increased [None]
  - Lymphadenopathy [None]
  - Hot flush [None]
  - Asthenia [None]
  - Blood pressure increased [None]
  - Fatigue [None]

NARRATIVE: CASE EVENT DATE: 20211201
